FAERS Safety Report 7512758-3 (Version None)
Quarter: 2011Q2

REPORT INFORMATION
  Report Type: 
  Country: None (occurrence: None)
  Receive Date: 20110531
  Receipt Date: 20110525
  Transmission Date: 20111010
  Serious: Yes (Death)
  Sender: FDA-Public Use
  Company Number: A0921181A

PATIENT
  Sex: Male

DRUGS (1)
  1. VOTRIENT [Suspect]
     Indication: RENAL CANCER METASTATIC
     Dosage: 800MG PER DAY
     Route: 048
     Dates: start: 20110112, end: 20110329

REACTIONS (4)
  - METASTASES TO SPINE [None]
  - METASTASIS [None]
  - DEATH [None]
  - ASTHENIA [None]
